FAERS Safety Report 7571489-4 (Version None)
Quarter: 2011Q2

REPORT INFORMATION
  Report Type: 
  Country: None (occurrence: None)
  Receive Date: 20110624
  Receipt Date: 20110615
  Transmission Date: 20111010
  Serious: Yes (Other)
  Sender: FDA-Public Use
  Company Number: FR-SHIRE-SPV1-2011-00951

PATIENT
  Sex: Female

DRUGS (1)
  1. ANAGRELIDE HYDROCHLORIDE [Suspect]
     Indication: ESSENTIAL THROMBOCYTHAEMIA
     Dosage: UNK UNK, UNKNOWN
     Route: 048
     Dates: start: 19980101

REACTIONS (1)
  - MYELOFIBROSIS [None]
